FAERS Safety Report 6738429-9 (Version None)
Quarter: 2010Q2

REPORT INFORMATION
  Report Type: 
  Country: None (occurrence: None)
  Receive Date: 20100520
  Receipt Date: 20100510
  Transmission Date: 20101027
  Serious: Yes (Death)
  Sender: FDA-Public Use
  Company Number: 2007SP002472

PATIENT
  Age: 32 Year
  Sex: Male
  Weight: 98.4 kg

DRUGS (4)
  1. LUNESTA [Suspect]
     Indication: INSOMNIA
     Dosage: 3 MG;HS; ORAL
     Route: 048
     Dates: end: 20070101
  2. LEXAPRO [Concomitant]
  3. EFFEXOR [Concomitant]
  4. ETHANOL [Concomitant]

REACTIONS (3)
  - ASPHYXIA [None]
  - BLOOD ETHANOL INCREASED [None]
  - COMPLETED SUICIDE [None]
